FAERS Safety Report 6405571-1 (Version None)
Quarter: 2009Q4

REPORT INFORMATION
  Report Type: 
  Country: None (occurrence: None)
  Receive Date: 20091019
  Receipt Date: 20091002
  Transmission Date: 20100525
  Serious: No
  Sender: FDA-Public Use
  Company Number: US-BAYER-200933865NA

PATIENT
  Age: 22 Year
  Sex: Female
  Weight: 52 kg

DRUGS (2)
  1. MIRENA [Suspect]
     Indication: HORMONE REPLACEMENT THERAPY
     Dosage: CONTINUOUS DELIVERY
     Route: 015
     Dates: start: 20090819
  2. MIRENA [Suspect]
     Route: 015
     Dates: start: 20090819, end: 20090819

REACTIONS (3)
  - COMPLICATION OF DEVICE INSERTION [None]
  - PALLOR [None]
  - PROCEDURAL PAIN [None]
